FAERS Safety Report 18752799 (Version 3)
Quarter: 2021Q1

REPORT INFORMATION
  Report Type: Report from Study
  Country: US (occurrence: US)
  Receive Date: 20210118
  Receipt Date: 20210201
  Transmission Date: 20210419
  Serious: Yes (Death, Other)
  Sender: FDA-Public Use
  Company Number: US-AMGEN-USACT2021008058

PATIENT
  Age: 53 Year
  Sex: Male
  Weight: 84.6 kg

DRUGS (25)
  1. CEFDINIR. [Concomitant]
     Active Substance: CEFDINIR
     Indication: COVID-19 PNEUMONIA
     Dosage: UNK
     Dates: start: 20201130
  2. LACTULOSE. [Concomitant]
     Active Substance: LACTULOSE
     Indication: CONSTIPATION
     Dosage: 20 MILLIGRAM, QD AS NEEDED
     Route: 048
     Dates: start: 20201218, end: 20201220
  3. NOREPINEPHRINE. [Concomitant]
     Active Substance: NOREPINEPHRINE
     Dosage: 0.5 ? 40 MICROGRAM PER MINUTE
     Route: 042
     Dates: start: 20201215
  4. APREMILAST [Suspect]
     Active Substance: APREMILAST
     Indication: COVID-19
     Dosage: 30 MILLIGRAM, Q12H
     Route: 048
     Dates: start: 20201214, end: 20201222
  5. PHENOBARBITAL. [Concomitant]
     Active Substance: PHENOBARBITAL
     Dosage: 65 MILLIGRAM, Q8H
     Route: 042
     Dates: start: 20201217
  6. DECADRON [Concomitant]
     Active Substance: DEXAMETHASONE
     Indication: COVID-19 PNEUMONIA
     Dosage: UNK
     Dates: start: 20201130
  7. MYCOPHENOLATE MOFETIL. [Concomitant]
     Active Substance: MYCOPHENOLATE MOFETIL
     Dosage: UNK
  8. FENTANYL. [Concomitant]
     Active Substance: FENTANYL
     Indication: SEDATION
     Dosage: 300 MICROGRAM PER HOURS
     Route: 042
     Dates: start: 20201215, end: 20201225
  9. REMDESIVIR. [Suspect]
     Active Substance: REMDESIVIR
     Indication: COVID-19
     Dosage: 100 MILLIGRAM, QD
     Route: 042
     Dates: start: 20201214, end: 20201223
  10. INSULIN ASPART [Concomitant]
     Active Substance: INSULIN ASPART
     Indication: HYPERGLYCAEMIA
     Dosage: 0?6 UNITS, Q4H PER SLIDING SCALE
     Route: 058
     Dates: start: 20201212
  11. ARIPIPRAZOLE. [Concomitant]
     Active Substance: ARIPIPRAZOLE
     Dosage: 5 MILLIGRAM, QD
     Route: 048
     Dates: start: 20201212
  12. HEPARIN [Concomitant]
     Active Substance: HEPARIN SODIUM
     Indication: COAGULOPATHY
  13. MIDAZOLAM. [Concomitant]
     Active Substance: MIDAZOLAM
     Dosage: 7 MILLIGRAM PER HOURS
     Route: 042
     Dates: start: 20201217
  14. BUSPIRON [BUSPIRONE HYDROCHLORIDE] [Concomitant]
     Active Substance: BUSPIRONE HYDROCHLORIDE
     Dosage: 2.5 MILLIGRAM, Q12H
     Route: 048
     Dates: start: 20201112
  15. DEXAMETHASONE. [Concomitant]
     Active Substance: DEXAMETHASONE
     Indication: COVID-19
     Dosage: 5 MILLIGRAM QD AND 20 MILLIGRAM
     Route: 042
     Dates: start: 20201211, end: 20201221
  16. PREDNISONE. [Concomitant]
     Active Substance: PREDNISONE
     Dosage: 10 MILLIGRAM, QD
     Dates: start: 20200201
  17. ESCITALOPRAM [Concomitant]
     Active Substance: ESCITALOPRAM OXALATE
     Dosage: 30 MILLIGRAM, QD
     Dates: start: 20201211
  18. NOVASOURCE RENAL [Concomitant]
     Dosage: 40 MILLILITER PER HOURS
     Route: 048
     Dates: start: 20201218
  19. CISATRACURIUM. [Concomitant]
     Active Substance: CISATRACURIUM
     Dosage: 5 MICROGRAM/KILOGRAM PER MINUTE
     Route: 042
     Dates: start: 20201215, end: 20201227
  20. CEFEPIME [Concomitant]
     Active Substance: CEFEPIME HYDROCHLORIDE
     Indication: PNEUMONIA BACTERIAL
  21. GANCICLOVIR. [Concomitant]
     Active Substance: GANCICLOVIR
     Indication: PROPHYLAXIS
     Dosage: 2.5 MILLIGRAM/KILOGRAM, QD
     Route: 042
     Dates: start: 20201217
  22. HEPARIN [Concomitant]
     Active Substance: HEPARIN SODIUM
     Indication: DEEP VEIN THROMBOSIS
     Dosage: 7500 UNIT, Q8H AND 6.5 UNITS/KG/HR
     Dates: start: 20201212
  23. LANSOPRAZOLE. [Concomitant]
     Active Substance: LANSOPRAZOLE
     Indication: PROPHYLAXIS
     Dosage: 30 MILLIGRAM, QD
     Route: 048
     Dates: start: 20201212
  24. TACROLIMUS. [Concomitant]
     Active Substance: TACROLIMUS
     Indication: LUNG TRANSPLANT
     Dosage: 0.5 MILLIGRAM, Q12H
     Route: 060
     Dates: start: 20201211
  25. CHLORHEXIDINE GLUCONATE. [Concomitant]
     Active Substance: CHLORHEXIDINE GLUCONATE
     Indication: INFECTION PROPHYLAXIS
     Dosage: 1 APPLICATION, QD TOP
     Dates: start: 20201211

REACTIONS (1)
  - Pneumonia [Fatal]

NARRATIVE: CASE EVENT DATE: 20201221
